FAERS Safety Report 20983793 (Version 1)
Quarter: 2022Q2

REPORT INFORMATION
  Report Type: Spontaneous
  Country: US (occurrence: None)
  Receive Date: 20220621
  Receipt Date: 20220621
  Transmission Date: 20220720
  Serious: Yes (Other)
  Sender: FDA-Public Use
  Company Number: 2022A220933

PATIENT
  Age: 30129 Day
  Sex: Female

DRUGS (2)
  1. BYDUREON [Suspect]
     Active Substance: EXENATIDE
     Route: 065
  2. BYDUREON BCISE [Suspect]
     Active Substance: EXENATIDE
     Dosage: 2.0MG UNKNOWN
     Route: 065
     Dates: start: 20220608

REACTIONS (5)
  - Neoplasm malignant [Unknown]
  - Injection site haemorrhage [Unknown]
  - Drug dose omission by device [Not Recovered/Not Resolved]
  - Wrong technique in device usage process [Unknown]
  - Drug delivery system malfunction [Unknown]

NARRATIVE: CASE EVENT DATE: 20220608
